FAERS Safety Report 25529865 (Version 1)
Quarter: 2025Q3

REPORT INFORMATION
  Report Type: Spontaneous
  Country: EU (occurrence: EU)
  Receive Date: 20250708
  Receipt Date: 20250708
  Transmission Date: 20251020
  Serious: Yes (Life-Threatening)
  Sender: AMGEN
  Company Number: None

PATIENT
  Age: 75 Year
  Sex: Female
  Weight: 27 kg

DRUGS (3)
  1. BEVACIZUMAB [Suspect]
     Active Substance: BEVACIZUMAB
     Indication: Colon cancer
     Route: 040
     Dates: start: 20240911, end: 20240911
  2. FLUOROURACIL [Suspect]
     Active Substance: FLUOROURACIL
     Indication: Colon cancer
     Route: 040
     Dates: start: 20240911, end: 20240911
  3. IRINOTECAN [Suspect]
     Active Substance: IRINOTECAN
     Indication: Colon cancer
     Route: 040
     Dates: start: 20240911, end: 20240911

REACTIONS (2)
  - General physical health deterioration [Recovered/Resolved]
  - Bone marrow failure [Recovered/Resolved]

NARRATIVE: CASE EVENT DATE: 20240919
